FAERS Safety Report 5636641-3 (Version None)
Quarter: 2008Q1

REPORT INFORMATION
  Report Type: 
  Country: None (occurrence: None)
  Receive Date: 20080219
  Receipt Date: 20080219
  Transmission Date: 20080703
  Serious: Yes (Other)
  Sender: FDA-Public Use
  Company Number: None

PATIENT
  Age: 46 Year
  Sex: Male
  Weight: 129.7287 kg

DRUGS (4)
  1. ONE-A-DAY WEIGHTSMART ADVANTAGE [Suspect]
     Indication: VITAMIN SUPPLEMENTATION
     Dosage: ORAL
     Route: 048
     Dates: start: 20071101
  2. ASPIRIN [Suspect]
     Indication: CHEST PAIN
     Dosage: ORAL
     Route: 048
     Dates: start: 20071101
  3. ASPIRIN [Suspect]
     Indication: NECK PAIN
     Dosage: ORAL
     Route: 048
     Dates: start: 20071101
  4. BENICAR [Concomitant]

REACTIONS (2)
  - BLOOD PRESSURE INCREASED [None]
  - HEART RATE INCREASED [None]
